FAERS Safety Report 13288905 (Version 1)
Quarter: 2017Q1

REPORT INFORMATION
  Report Type: Spontaneous
  Country: US (occurrence: US)
  Receive Date: 20170302
  Receipt Date: 20170302
  Transmission Date: 20170428
  Serious: No
  Sender: FDA-Public Use
  Company Number: US-009507513-1702USA001745

PATIENT
  Age: 67 Year
  Sex: Female

DRUGS (5)
  1. CALCIUM (UNSPECIFIED) [Concomitant]
     Active Substance: CALCIUM
  2. VITAMIN D [Concomitant]
     Active Substance: CHOLECALCIFEROL
  3. BONIVA [Concomitant]
     Active Substance: IBANDRONATE SODIUM
     Dosage: 3 MG, UNK
     Dates: start: 20161130
  4. ACETAMINOPHEN. [Concomitant]
     Active Substance: ACETAMINOPHEN
  5. ZETIA [Suspect]
     Active Substance: EZETIMIBE
     Indication: BLOOD CHOLESTEROL ABNORMAL
     Dosage: 10 MG TABLET DAILY
     Route: 048
     Dates: start: 20161129, end: 20161212

REACTIONS (3)
  - Arthralgia [Recovering/Resolving]
  - Joint swelling [Recovering/Resolving]
  - Joint swelling [Not Recovered/Not Resolved]

NARRATIVE: CASE EVENT DATE: 20161211
